FAERS Safety Report 14114823 (Version 1)
Quarter: 2017Q4

REPORT INFORMATION
  Report Type: Spontaneous
  Country: US (occurrence: US)
  Receive Date: 20171023
  Receipt Date: 20171023
  Transmission Date: 20180321
  Serious: No
  Sender: FDA-Public Use
  Company Number: US-MISSION PHARMACAL COMPANY-2031194

PATIENT
  Age: 23 Year
  Sex: Male

DRUGS (1)
  1. THIOLA [Suspect]
     Active Substance: TIOPRONIN
     Indication: CYSTINURIA
     Route: 065
     Dates: start: 20170913

REACTIONS (4)
  - Incorrect dose administered [Unknown]
  - Abdominal discomfort [Unknown]
  - Nervousness [Unknown]
  - Dizziness [Unknown]
